FAERS Safety Report 10299063 (Version 2)
Quarter: 2015Q1

REPORT INFORMATION
  Report Type: Spontaneous
  Country: CA (occurrence: CA)
  Receive Date: 20140711
  Receipt Date: 20150306
  Transmission Date: 20150720
  Serious: Yes (Death, Other)
  Sender: FDA-Public Use
  Company Number: CA-009507513-1407CAN003486

PATIENT
  Age: 61 Year
  Sex: Male

DRUGS (9)
  1. OMEPRAZOLE. [Concomitant]
     Active Substance: OMEPRAZOLE
     Dosage: 40.0 MG, UNK
     Route: 048
  2. EPREX [Concomitant]
     Active Substance: ERYTHROPOIETIN
     Dosage: TOTAL DAILY DOSE: 40000IU, ONCE WEEKLY
     Route: 058
  3. SERTRALINE HYDROCHLORIDE. [Concomitant]
     Active Substance: SERTRALINE HYDROCHLORIDE
     Dosage: 75.0 MG, UNK
     Route: 048
  4. ASPIRIN. [Concomitant]
     Active Substance: ASPIRIN
  5. VICTRELIS [Suspect]
     Active Substance: BOCEPREVIR
     Indication: HEPATITIS C
     Dosage: UNK MG, UNK
     Route: 048
     Dates: start: 20131219, end: 20140701
  6. RIBAVIRIN. [Suspect]
     Active Substance: RIBAVIRIN
     Indication: HEPATITIS C
     Dosage: 600 MG, 1 EVERY 1 DAY
     Route: 048
  7. EPOETIN ALFA [Concomitant]
     Active Substance: ERYTHROPOIETIN
     Indication: ANAEMIA
     Dosage: 40000.0 IU, 1 EVERY 1 WEEK
     Route: 058
  8. PEGASYS [Suspect]
     Active Substance: PEGINTERFERON ALFA-2A
     Indication: HEPATITIS C
     Dosage: 180 MICROGRAM, 1 EVERY 1 WEEKLY
     Route: 058
  9. TEMAZEPAM. [Concomitant]
     Active Substance: TEMAZEPAM
     Dosage: 15.0 MG, UNK
     Route: 048

REACTIONS (3)
  - Neutropenia [Fatal]
  - Haemoglobin decreased [Fatal]
  - Death [Fatal]

NARRATIVE: CASE EVENT DATE: 20140701
